FAERS Safety Report 15459971 (Version 1)
Quarter: 2018Q4

REPORT INFORMATION
  Report Type: Spontaneous
  Country: JP (occurrence: JP)
  Receive Date: 20181003
  Receipt Date: 20181003
  Transmission Date: 20190204
  Serious: Yes (Other)
  Sender: FDA-Public Use
  Company Number: JP-SA-2018SA267209

PATIENT
  Sex: Male

DRUGS (1)
  1. DOCETAXEL. [Suspect]
     Active Substance: DOCETAXEL
     Indication: METASTASIS
     Dosage: 75 MG/M2, Q5W

REACTIONS (2)
  - Erythema [Recovering/Resolving]
  - Radiation skin injury [Recovering/Resolving]
